FAERS Safety Report 19170635 (Version 3)
Quarter: 2021Q2

REPORT INFORMATION
  Report Type: Report from Study
  Country: US (occurrence: US)
  Receive Date: 20210422
  Receipt Date: 20210617
  Transmission Date: 20210717
  Serious: Yes (Hospitalization, Other)
  Sender: FDA-Public Use
  Company Number: US-BRISTOL-MYERS SQUIBB COMPANY-BMS-2021-037443

PATIENT
  Age: 80 Year
  Sex: Male
  Weight: 58.96 kg

DRUGS (4)
  1. AMOXICILLIN. [Concomitant]
     Active Substance: AMOXICILLIN
     Indication: PRODUCT USED FOR UNKNOWN INDICATION
     Dosage: UNK
     Route: 065
  2. METOPROLOL. [Concomitant]
     Active Substance: METOPROLOL
     Indication: PRODUCT USED FOR UNKNOWN INDICATION
     Dosage: 12.5 MILLIGRAM, BID
     Route: 065
  3. APIXABAN [Suspect]
     Active Substance: APIXABAN
     Indication: CEREBROVASCULAR ACCIDENT PROPHYLAXIS
     Dosage: 2.5 MILLIGRAM, BID
     Route: 048
     Dates: start: 20210331
  4. APIXABAN [Suspect]
     Active Substance: APIXABAN
     Dosage: 5 MILLIGRAM, BID
     Route: 048
     Dates: start: 20210414, end: 20210429

REACTIONS (9)
  - Intestinal obstruction [Unknown]
  - Fatigue [Unknown]
  - Heart rate decreased [Unknown]
  - Hypotension [Unknown]
  - Rectal haemorrhage [Unknown]
  - Prescribed overdose [Unknown]
  - Lower gastrointestinal haemorrhage [Unknown]
  - Large intestinal haemorrhage [Unknown]
  - Dizziness [Unknown]

NARRATIVE: CASE EVENT DATE: 20210405
